FAERS Safety Report 5152644-X (Version None)
Quarter: 2006Q4

REPORT INFORMATION
  Report Type: 
  Country: None (occurrence: None)
  Receive Date: 20061109
  Receipt Date: 20061030
  Transmission Date: 20070319
  Serious: Yes (Hospitalization, Disabling)
  Sender: FDA-Public Use
  Company Number: OSCN-PR-0608S-0249

PATIENT
  Age: 49 Year
  Sex: Male

DRUGS (6)
  1. OMNISCAN [Suspect]
     Indication: DRUG USE FOR UNKNOWN INDICATION
     Dosage: 32 ML, SINGLE DOSE, I.V.
     Route: 042
  2. IMMUNOGLOBULIN ANTIHEPATITIS B (HEPATITIS B IMMUNE GLOBULIN) [Concomitant]
  3. SIMULECT [Concomitant]
  4. TACROLIMUS [Concomitant]
  5. MYCOPHENOLATE MOFETIL [Concomitant]
  6. PREDNISONE TAB [Concomitant]

REACTIONS (10)
  - CHOLESTASIS [None]
  - COMPLICATIONS OF TRANSPLANTED LIVER [None]
  - GRAFT VERSUS HOST DISEASE [None]
  - HAEMODIALYSIS [None]
  - LICHEN MYXOEDEMATOSUS [None]
  - LIVER TRANSPLANT [None]
  - NEPHROGENIC FIBROSING DERMOPATHY [None]
  - OEDEMA PERIPHERAL [None]
  - RENAL IMPAIRMENT [None]
  - THERAPY NON-RESPONDER [None]
